FAERS Safety Report 7651234-4 (Version None)
Quarter: 2011Q3

REPORT INFORMATION
  Report Type: 
  Country: None (occurrence: None)
  Receive Date: 20110802
  Receipt Date: 20110722
  Transmission Date: 20111222
  Serious: Yes (Hospitalization)
  Sender: FDA-Public Use
  Company Number: FR-ELI_LILLY_AND_COMPANY-FR201103007397

PATIENT
  Age: 59 Year
  Sex: Male
  Weight: 112 kg

DRUGS (10)
  1. BYETTA [Suspect]
     Indication: DIABETES MELLITUS
     Dosage: 5 UG, BID
     Route: 058
     Dates: start: 20100101, end: 20100301
  2. LEVEMIR [Concomitant]
     Indication: DIABETES MELLITUS
     Dosage: 32 IU, QD
     Route: 058
     Dates: start: 20100101
  3. CRESTOR [Concomitant]
     Indication: HYPERCHOLESTEROLAEMIA
     Dosage: 1 DF, QD
     Route: 048
     Dates: start: 20080101
  4. METFORMIN HCL [Concomitant]
     Indication: DIABETES MELLITUS
     Dosage: 3 DF, QD
     Dates: start: 20000101
  5. ACTOS [Concomitant]
     Indication: DIABETES MELLITUS
     Dosage: 1 DF, QD
     Route: 048
     Dates: start: 20110301
  6. AMLODIPINE BESYLATE [Concomitant]
     Indication: HYPERTENSION
     Dosage: 1 DF, QD
     Route: 048
     Dates: start: 20110201
  7. DIAMICRON [Concomitant]
     Indication: DIABETES MELLITUS
     Dosage: 2 DF, QD
     Dates: start: 20110201
  8. OLMESARTAN MEDOXOMIL [Concomitant]
     Indication: HYPERTENSION
     Dosage: 1 DF, QD
     Route: 048
     Dates: start: 20110201
  9. BYETTA [Suspect]
     Dosage: 10 UG, BID
     Route: 058
     Dates: start: 20100301, end: 20110314
  10. SERETIDE [Concomitant]
     Indication: CHRONIC OBSTRUCTIVE PULMONARY DISEASE
     Dosage: 2 DF, QD
     Route: 048
     Dates: start: 20110201

REACTIONS (4)
  - OFF LABEL USE [None]
  - LUNG DISORDER [None]
  - VOMITING [None]
  - WEIGHT DECREASED [None]
